FAERS Safety Report 8612503-4 (Version None)
Quarter: 2012Q3

REPORT INFORMATION
  Report Type: 
  Country: None (occurrence: None)
  Receive Date: 20120822
  Receipt Date: 20120813
  Transmission Date: 20120928
  Serious: Yes (Hospitalization)
  Sender: FDA-Public Use
  Company Number: US-ABBOTT-12P-163-0946565-00

PATIENT
  Sex: Male
  Weight: 86.26 kg

DRUGS (13)
  1. ALENDRONATE SODIUM [Concomitant]
     Indication: PRODUCT USED FOR UNKNOWN INDICATION
  2. HYDROXYCHLOROQUINE SULFATE [Concomitant]
     Indication: PRODUCT USED FOR UNKNOWN INDICATION
  3. HUMIRA [Suspect]
     Indication: ANKYLOSING SPONDYLITIS
     Route: 058
     Dates: start: 20120220, end: 20120514
  4. ASPIRIN [Concomitant]
     Indication: PRODUCT USED FOR UNKNOWN INDICATION
  5. COLCHICINE [Concomitant]
     Indication: PRODUCT USED FOR UNKNOWN INDICATION
  6. PREDNISONE TAB [Concomitant]
     Indication: ANKYLOSING SPONDYLITIS
  7. METOPROLOL TARTRATE [Concomitant]
     Indication: HYPERTENSION
  8. PREDNISONE TAB [Concomitant]
  9. ADVIL [Concomitant]
     Indication: PAIN
     Dosage: Q 4 HOURS /PRN
  10. AMLODIPINE [Concomitant]
     Indication: HYPERTENSION
  11. MIRTAZAPINE [Concomitant]
     Indication: PRODUCT USED FOR UNKNOWN INDICATION
  12. PLAQUENIL [Concomitant]
     Indication: PRODUCT USED FOR UNKNOWN INDICATION
  13. ZETIA [Concomitant]
     Indication: BLOOD CHOLESTEROL INCREASED

REACTIONS (10)
  - RENAL FAILURE ACUTE [None]
  - HYPOTENSION [None]
  - SEPTIC SHOCK [None]
  - DIVERTICULUM [None]
  - URINE FLOW DECREASED [None]
  - CHILLS [None]
  - ARTHRITIS [None]
  - UROSEPSIS [None]
  - FALL [None]
  - NEPHROLITHIASIS [None]
